FAERS Safety Report 5070894-8 (Version None)
Quarter: 2006Q3

REPORT INFORMATION
  Report Type: 
  Country: None (occurrence: None)
  Receive Date: 20060804
  Receipt Date: 20060726
  Transmission Date: 20061208
  Serious: Yes (Other)
  Sender: FDA-Public Use
  Company Number: US-JNJFOC-20060705965

PATIENT
  Sex: Male
  Weight: 106.6 kg

DRUGS (4)
  1. PEPCID COMPLETE [Suspect]
  2. PEPCID COMPLETE [Suspect]
     Indication: DYSPEPSIA
  3. BLOOD PRESSURE MEDICATION [Concomitant]
     Indication: BLOOD PRESSURE ABNORMAL
  4. ZYRTEC [Concomitant]
     Indication: SEASONAL ALLERGY

REACTIONS (1)
  - HYPERTENSION [None]
